FAERS Safety Report 4820912-4 (Version None)
Quarter: 2005Q4

REPORT INFORMATION
  Report Type: 
  Country: None (occurrence: None)
  Receive Date: 20051104
  Receipt Date: 20050531
  Transmission Date: 20060501
  Serious: Yes (Hospitalization)
  Sender: FDA-Public Use
  Company Number: 200511601JP

PATIENT
  Age: 69 Year
  Sex: Female
  Weight: 41.6 kg

DRUGS (5)
  1. ARAVA [Suspect]
     Indication: RHEUMATOID ARTHRITIS
     Route: 048
     Dates: start: 20031118, end: 20031118
  2. ARAVA [Suspect]
     Route: 048
     Dates: start: 20031121, end: 20040327
  3. LOXONIN [Concomitant]
     Indication: RHEUMATOID ARTHRITIS
     Dosage: DOSE: AS NEEDED
     Route: 048
  4. AZULFIDINE [Concomitant]
     Indication: RHEUMATOID ARTHRITIS
     Route: 048
     Dates: end: 20031118
  5. ALLOID [Concomitant]

REACTIONS (8)
  - AMYLOIDOSIS [None]
  - BRADYCARDIA [None]
  - CONVULSION [None]
  - DIALYSIS [None]
  - DIARRHOEA [None]
  - HYPERTENSION [None]
  - RETINAL HAEMORRHAGE [None]
  - SICK SINUS SYNDROME [None]
